FAERS Safety Report 18694382 (Version 1)
Quarter: 2020Q4

REPORT INFORMATION
  Report Type: Spontaneous
  Country: US (occurrence: US)
  Receive Date: 20201231
  Receipt Date: 20201231
  Transmission Date: 20210114
  Serious: Yes (Hospitalization)
  Sender: FDA-Public Use
  Company Number: None

PATIENT
  Age: 4 Year
  Sex: Female

DRUGS (1)
  1. LEUKINE [Suspect]
     Active Substance: SARGRAMOSTIM
     Indication: ADRENAL GLAND CANCER
     Dosage: ?          OTHER FREQUENCY:Q24H D 7-12;?
     Route: 058
     Dates: start: 20200221

REACTIONS (1)
  - Hypertension [None]

NARRATIVE: CASE EVENT DATE: 20201215
